FAERS Safety Report 8286676-X (Version None)
Quarter: 2012Q2

REPORT INFORMATION
  Report Type: 
  Country: None (occurrence: None)
  Receive Date: 20120416
  Receipt Date: 20120404
  Transmission Date: 20120825
  Serious: Yes (Hospitalization)
  Sender: FDA-Public Use
  Company Number: SE-JNJFOC-20120305408

PATIENT
  Age: 19 Year
  Sex: Male

DRUGS (17)
  1. REMICADE [Suspect]
     Indication: ENTEROCOLITIS
     Route: 042
     Dates: start: 20110916
  2. REMICADE [Suspect]
     Route: 042
     Dates: start: 20111026, end: 20111026
  3. UNKNOWN MEDICATION [Concomitant]
     Route: 065
  4. REMICADE [Suspect]
     Route: 042
     Dates: start: 20110929
  5. CREON [Concomitant]
     Route: 065
  6. LOVAZA [Concomitant]
     Route: 065
  7. MAGNESIUM CITRATE [Concomitant]
     Route: 065
  8. CALCIUM CARBONATE [Concomitant]
     Route: 065
  9. POTASSIUM CHLORIDE [Concomitant]
     Route: 065
  10. REMICADE [Suspect]
     Indication: ENTEROCOLITIS INFECTIOUS
     Route: 042
     Dates: start: 20110916
  11. VANCOMYCIN [Suspect]
     Indication: ENTEROCOLITIS
     Dosage: 3 TABLETS DAILY, THEN 15 TABLETS DAILY/125MG.
     Route: 048
     Dates: start: 20110701, end: 20110801
  12. MAGNESIUM LACTATE [Concomitant]
     Route: 065
  13. REMICADE [Suspect]
     Route: 042
     Dates: start: 20110929
  14. PREDNISOLONE [Concomitant]
     Route: 065
  15. REMICADE [Suspect]
     Route: 042
     Dates: start: 20111026, end: 20111026
  16. PROGRAF [Concomitant]
     Route: 065
  17. CHOLECALCIFEROL [Concomitant]
     Route: 065

REACTIONS (2)
  - ACUTE GENERALISED EXANTHEMATOUS PUSTULOSIS [None]
  - PSORIASIS [None]
